FAERS Safety Report 6326685-0 (Version None)
Quarter: 2009Q3

REPORT INFORMATION
  Report Type: 
  Country: None (occurrence: None)
  Receive Date: 20090818
  Receipt Date: 20090611
  Transmission Date: 20100115
  Serious: No
  Sender: FDA-Public Use
  Company Number: WAES 0906USA02074

PATIENT
  Sex: Male

DRUGS (2)
  1. JANUVIA [Suspect]
     Indication: DIABETES MELLITUS
     Dosage: 25 MG/DAILY/PO
     Route: 048
     Dates: start: 20090301
  2. LANTUS [Concomitant]

REACTIONS (1)
  - DRUG INEFFECTIVE [None]
